FAERS Safety Report 10269535 (Version 1)
Quarter: 2014Q3

REPORT INFORMATION
  Report Type: Spontaneous
  Country: US (occurrence: US)
  Receive Date: 20140701
  Receipt Date: 20140701
  Transmission Date: 20150326
  Serious: Yes (Hospitalization)
  Sender: FDA-Public Use
  Company Number: US-BRISTOL-MYERS SQUIBB COMPANY-21064787

PATIENT
  Age: 52 Year
  Sex: Female
  Weight: 52.7 kg

DRUGS (18)
  1. REGLAN [Concomitant]
     Active Substance: METOCLOPRAMIDE HYDROCHLORIDE
  2. MIRAPEX [Concomitant]
     Active Substance: PRAMIPEXOLE DIHYDROCHLORIDE
  3. TOPAMAX [Concomitant]
     Active Substance: TOPIRAMATE
  4. ADVAIR HFA [Concomitant]
     Active Substance: FLUTICASONE PROPIONATE\SALMETEROL XINAFOATE
  5. HYDROCODONE, ACETAMINOPHEN [Concomitant]
     Active Substance: ACETAMINOPHEN\HYDROCODONE BITARTRATE
  6. ABILIFY [Suspect]
     Active Substance: ARIPIPRAZOLE
  7. PROVIGIL [Concomitant]
     Active Substance: MODAFINIL
  8. ADDERALL [Concomitant]
     Active Substance: AMPHETAMINE ASPARTATE\AMPHETAMINE SULFATE\DEXTROAMPHETAMINE SACCHARATE\DEXTROAMPHETAMINE SULFATE
  9. SINGULAIR [Concomitant]
     Active Substance: MONTELUKAST SODIUM
  10. PRILOSEC [Concomitant]
     Active Substance: OMEPRAZOLE MAGNESIUM
  11. LESCOL [Concomitant]
     Active Substance: FLUVASTATIN SODIUM
  12. LASIX [Concomitant]
     Active Substance: FUROSEMIDE
  13. ALPRAZOLAM. [Concomitant]
     Active Substance: ALPRAZOLAM
  14. ALBUTEROL. [Concomitant]
     Active Substance: ALBUTEROL
  15. WELLBUTRIN [Concomitant]
     Active Substance: BUPROPION HYDROCHLORIDE
  16. CLONIDINE. [Concomitant]
     Active Substance: CLONIDINE
  17. FLUOXETINE [Concomitant]
     Active Substance: FLUOXETINE\FLUOXETINE HYDROCHLORIDE
  18. ZANAFLEX [Concomitant]
     Active Substance: TIZANIDINE HYDROCHLORIDE

REACTIONS (4)
  - Lung infiltration [Unknown]
  - Arthralgia [Unknown]
  - Lobar pneumonia [Unknown]
  - Pleural effusion [Unknown]
